FAERS Safety Report 14635534 (Version 1)
Quarter: 2018Q1

REPORT INFORMATION
  Report Type: Report from Study
  Country: US (occurrence: US)
  Receive Date: 20180314
  Receipt Date: 20180314
  Transmission Date: 20180509
  Serious: No
  Sender: FDA-Public Use
  Company Number: PHEH2018US010053

PATIENT
  Age: 31 Year
  Sex: Female

DRUGS (1)
  1. COSENTYX [Suspect]
     Active Substance: SECUKINUMAB
     Indication: PRODUCT USED FOR UNKNOWN INDICATION
     Dosage: 300 MG, QW
     Route: 058
     Dates: start: 20171018, end: 20180218

REACTIONS (1)
  - Gastrointestinal disorder [Unknown]

NARRATIVE: CASE EVENT DATE: 20180302
